FAERS Safety Report 24992358 (Version 3)
Quarter: 2025Q2

REPORT INFORMATION
  Report Type: Report from Study
  Country: CO (occurrence: CO)
  Receive Date: 20250220
  Receipt Date: 20250429
  Transmission Date: 20250716
  Serious: Yes (Death, Hospitalization)
  Sender: ABBVIE
  Company Number: CO-ABBVIE-6141047

PATIENT
  Age: 48 Year
  Sex: Male

DRUGS (3)
  1. VENCLEXTA [Suspect]
     Active Substance: VENETOCLAX
     Indication: Acute myeloid leukaemia
     Dosage: 200 MG/DAY FOR 7 DAYS
     Route: 048
     Dates: start: 20240826
  2. VENCLEXTA [Suspect]
     Active Substance: VENETOCLAX
     Indication: Acute myeloid leukaemia
     Dosage: VENCLEXTA BOTTLE 100 MG
     Route: 048
     Dates: end: 20250213
  3. AZACITIDINE [Concomitant]
     Active Substance: AZACITIDINE
     Indication: Acute myeloid leukaemia
     Dates: start: 2024, end: 202502

REACTIONS (9)
  - Death [Fatal]
  - Platelet count decreased [Unknown]
  - White blood cell count decreased [Unknown]
  - Arthralgia [Not Recovered/Not Resolved]
  - Pyrexia [Not Recovered/Not Resolved]
  - Muscular weakness [Unknown]
  - Weight decreased [Unknown]
  - Crying [Unknown]
  - Unevaluable event [Unknown]

NARRATIVE: CASE EVENT DATE: 20241224
